FAERS Safety Report 11908653 (Version 1)
Quarter: 2016Q1

REPORT INFORMATION
  Report Type: Report from Study
  Country: US (occurrence: US)
  Receive Date: 20160111
  Receipt Date: 20160111
  Transmission Date: 20160526
  Serious: Yes (Other)
  Sender: FDA-Public Use
  Company Number: US-GILEAD-2015-0188531

PATIENT
  Age: 66 Year
  Sex: Female

DRUGS (1)
  1. LEDIPASVIR/SOFOSBUVIR [Suspect]
     Active Substance: LEDIPASVIR\SOFOSBUVIR
     Indication: CHRONIC HEPATITIS C
     Dosage: 1 DF, UNK
     Route: 048

REACTIONS (8)
  - Gastrooesophageal reflux disease [Unknown]
  - Tooth infection [Unknown]
  - Pain in jaw [Unknown]
  - Gingival abscess [Unknown]
  - Back pain [Unknown]
  - Oral pain [Unknown]
  - Tooth erosion [Unknown]
  - Pain in extremity [Unknown]
